FAERS Safety Report 11913402 (Version 1)
Quarter: 2016Q1

REPORT INFORMATION
  Report Type: Spontaneous
  Country: US (occurrence: None)
  Receive Date: 20160112
  Receipt Date: 20160112
  Transmission Date: 20160526
  Serious: Yes (Other)
  Sender: FDA-Public Use
  Company Number: None

PATIENT
  Age: 61 Year
  Sex: Female
  Weight: 78.02 kg

DRUGS (11)
  1. FLAXSEED [Concomitant]
     Active Substance: FLAX SEED
  2. MULTIVITAMIN [Concomitant]
     Active Substance: VITAMINS
  3. PROBIOTICS [Concomitant]
     Active Substance: PROBIOTICS NOS
  4. ECHINACEA [Concomitant]
     Active Substance: ECHINACEA, UNSPECIFIED
  5. IBUPROFEN. [Concomitant]
     Active Substance: IBUPROFEN
  6. ATENOLOL. [Concomitant]
     Active Substance: ATENOLOL
  7. GABAPENTIN 100 MG AUROBINDO [Suspect]
     Active Substance: GABAPENTIN
     Indication: HERPES ZOSTER
     Route: 048
     Dates: start: 20151230, end: 20160106
  8. CALCIUM/MAGNESIUM [Concomitant]
  9. GABA [Concomitant]
     Active Substance: .GAMMA.-AMINOBUTYRIC ACID
  10. CLARITIN [Concomitant]
     Active Substance: LORATADINE
  11. ASTRAGALUS [Concomitant]

REACTIONS (7)
  - Abdominal pain [None]
  - Confusional state [None]
  - Nasopharyngitis [None]
  - Fall [None]
  - Amnesia [None]
  - Influenza [None]
  - Injury [None]

NARRATIVE: CASE EVENT DATE: 20160106
